FAERS Safety Report 8362997-7 (Version None)
Quarter: 2012Q2

REPORT INFORMATION
  Report Type: 
  Country: None (occurrence: None)
  Receive Date: 20120514
  Receipt Date: 20120514
  Transmission Date: 20120825
  Serious: Yes (Hospitalization)
  Sender: FDA-Public Use
  Company Number: None

PATIENT
  Age: 8 Year
  Sex: Male
  Weight: 26.9 kg

DRUGS (2)
  1. CLONAZEPAM [Suspect]
     Indication: CONVULSION
  2. CLOBAZAM [Suspect]
     Indication: CONVULSION

REACTIONS (6)
  - ABNORMAL BEHAVIOUR [None]
  - DRUG PRESCRIBING ERROR [None]
  - FALL [None]
  - LACERATION [None]
  - SEDATION [None]
  - WRONG DRUG ADMINISTERED [None]
